FAERS Safety Report 17038650 (Version 4)
Quarter: 2020Q1

REPORT INFORMATION
  Report Type: Spontaneous
  Country: US (occurrence: US)
  Receive Date: 20191115
  Receipt Date: 20200205
  Transmission Date: 20200409
  Serious: Yes (Death, Hospitalization)
  Sender: FDA-Public Use
  Company Number: US-VIFOR (INTERNATIONAL) INC.-VIT-2019-12677

PATIENT
  Age: 81 Year
  Sex: Female

DRUGS (1)
  1. VELTASSA [Suspect]
     Active Substance: PATIROMER
     Indication: HYPERKALAEMIA
     Route: 048
     Dates: start: 20190827

REACTIONS (4)
  - Urinary tract infection [Unknown]
  - Respiratory distress [Not Recovered/Not Resolved]
  - Mental status changes [Unknown]
  - Death [Fatal]

NARRATIVE: CASE EVENT DATE: 201911
